FAERS Safety Report 12403869 (Version 2)
Quarter: 2016Q2

REPORT INFORMATION
  Report Type: Report from Study
  Country: US (occurrence: US)
  Receive Date: 20160525
  Receipt Date: 20160620
  Transmission Date: 20160815
  Serious: Yes (Hospitalization)
  Sender: FDA-Public Use
  Company Number: US-VERTEX PHARMACEUTICALS-2016-003288

PATIENT
  Age: 22 Year
  Sex: Male
  Weight: 46 kg

DRUGS (20)
  1. AQUADEKS [Concomitant]
     Active Substance: MINERALS\VITAMINS
     Dosage: UNK
     Dates: start: 20140729
  2. NEXIUM [Concomitant]
     Active Substance: ESOMEPRAZOLE MAGNESIUM
     Dosage: 40 MG DAILY, VA HOUR BEFORE A MEAL.
     Dates: start: 20141203
  3. ALBUTEROL. [Concomitant]
     Active Substance: ALBUTEROL
     Dosage: 3 ML NEBULIZED TWICE DAILY. INCREASE TO EVERY 4 HOUR AS NEEDED WHEN ILL.
     Dates: start: 20160127
  4. SYMBICORT [Concomitant]
     Active Substance: BUDESONIDE\FORMOTEROL FUMARATE DIHYDRATE
     Dosage: 160/4.5-.2 PUFFS TWICE DAILY WITH SPACER
     Dates: start: 20150422
  5. ORKAMBI [Suspect]
     Active Substance: IVACAFTOR\LUMACAFTOR
     Indication: CYSTIC FIBROSIS
     Dosage: 2 DF, BID
     Route: 048
     Dates: start: 20150822
  6. HYPERTONIC [Concomitant]
     Dosage: 7% SALINE 4 ML NEBULIZED TWICE DAILY VIA PARI
     Dates: start: 20080326
  7. ORKAMBI [Suspect]
     Active Substance: IVACAFTOR\LUMACAFTOR
     Dosage: UNK
     Route: 048
  8. ZITHROMAX [Concomitant]
     Active Substance: AZITHROMYCIN DIHYDRATE
     Dosage: 500 MG ON MON., WED., FRI
     Dates: start: 20151028
  9. SINGULAIR [Concomitant]
     Active Substance: MONTELUKAST SODIUM
     Dosage: 10 MG AT BEDTIME.
     Dates: start: 20151028
  10. PAXIL [Concomitant]
     Active Substance: PAROXETINE HYDROCHLORIDE
     Dosage: 20 MG, QD
     Dates: start: 20141203
  11. PERTZYE [Concomitant]
     Active Substance: PANCRELIPASE AMYLASE\PANCRELIPASE LIPASE\PANCRELIPASE PROTEASE
     Dosage: 7 /MEAL, 2-3/SNACK, 7 AT START AND END OF TUBE FEEDINGS DAILY.
     Dates: start: 20151028
  12. VITAMIN D [Concomitant]
     Active Substance: CHOLECALCIFEROL
     Dosage: 3000 UNITS DAILY
     Dates: start: 20151028
  13. LACTOBACILLUS ACIDOPHILUS\LACTOBACILLUS BULGARICUS [Concomitant]
     Active Substance: LACTOBACILLUS ACIDOPHILUS\LACTOBACILLUS DELBRUECKII SUBSP. BULGARICUS
     Dosage: 1 TABLET 3-4 TIMES DAILY
     Dates: start: 20120814
  14. CAYSTON [Concomitant]
     Active Substance: AZTREONAM
     Dosage: 75 MG NEBULIZED THREE TIMES DAILY. ALTERNATE WITH TOBI
     Dates: start: 20110604
  15. ADVAIR HFA [Concomitant]
     Active Substance: FLUTICASONE PROPIONATE\SALMETEROL XINAFOATE
     Dosage: 115/21 2 PUFFS TWICE DAILY
     Dates: start: 20141203
  16. NUTREN 2.0 [Concomitant]
     Dosage: 5 CANS/NIGHT THRU G-BUTTON. ADD SCANDISHAKES, HALF +HALF
  17. RETIN-A [Concomitant]
     Active Substance: TRETINOIN
     Dosage: 0.1% DAILY AT BEDTIME.(ON HOLD) BENZOYL PEROXIDE 10% CREAM AT BEDTIME
     Dates: start: 20110215
  18. PULMOZYME [Concomitant]
     Active Substance: DORNASE ALFA
     Dosage: 2.5 MG NEBULIZED DAILY VIA PARI
     Dates: start: 20100511
  19. CLARITIN-D 12 HOUR [Concomitant]
     Active Substance: LORATADINE\PSEUDOEPHEDRINE SULFATE
     Dosage: 12 HOUR TWICE DAILY FOR ALLERGIES
     Dates: start: 20141203
  20. PERIACTIN [Concomitant]
     Active Substance: CYPROHEPTADINE HYDROCHLORIDE
     Dosage: 4 MG THREE TIMES DAILY EVERY OTHER MONTH
     Dates: start: 20140311

REACTIONS (3)
  - Infective pulmonary exacerbation of cystic fibrosis [Recovering/Resolving]
  - Weight decreased [Recovering/Resolving]
  - Allergy to animal [Recovered/Resolved]

NARRATIVE: CASE EVENT DATE: 201604
